FAERS Safety Report 12960293 (Version 4)
Quarter: 2017Q4

REPORT INFORMATION
  Report Type: Report from Study
  Country: US (occurrence: US)
  Receive Date: 20161121
  Receipt Date: 20171115
  Transmission Date: 20180320
  Serious: Yes (Hospitalization, Other)
  Sender: FDA-Public Use
  Company Number: US-SAOL THERAPEUTICS-2016SAO01081

PATIENT
  Age: 73 Year
  Sex: Female

DRUGS (13)
  1. BACLOFEN. [Suspect]
     Active Substance: BACLOFEN
     Dosage: 104.14 ?G, \DAY
     Route: 037
  2. DILAUDID [Suspect]
     Active Substance: HYDROMORPHONE HYDROCHLORIDE
     Dosage: 1.2780 MG, \DAY
     Route: 037
  3. BACLOFEN. [Suspect]
     Active Substance: BACLOFEN
     Indication: PAIN
     Dosage: 106.50 ?G, \DAY
     Route: 037
  4. CLONIDINE. [Suspect]
     Active Substance: CLONIDINE
     Dosage: 96.85 ?G, \DAY
     Route: 037
     Dates: start: 20150810
  5. BUPIVACAINE. [Suspect]
     Active Substance: BUPIVACAINE
     Dosage: 12.780 MG, \DAY
     Route: 037
  6. DILAUDID [Suspect]
     Active Substance: HYDROMORPHONE HYDROCHLORIDE
     Dosage: 1.937 ?G, \DAY
     Route: 037
     Dates: start: 20150810
  7. CLONIDINE. [Suspect]
     Active Substance: CLONIDINE
     Dosage: 63.9 ?G, \DAY
     Route: 037
  8. BUPIVACAINE. [Suspect]
     Active Substance: BUPIVACAINE
     Dosage: 12.496 MG, \DAY
     Route: 037
  9. DILAUDID [Suspect]
     Active Substance: HYDROMORPHONE HYDROCHLORIDE
     Dosage: 1.2496 MG, \DAY
     Route: 037
  10. CLONIDINE. [Suspect]
     Active Substance: CLONIDINE
     Dosage: 62.48 ?G, \DAY
     Route: 037
  11. COMPOUNDED BACLOFEN [Suspect]
     Active Substance: BACLOFEN
     Indication: PAIN
     Dosage: 104.14 ?G, \DAY
     Route: 037
     Dates: start: 20150810
  12. BUPIVACAINE. [Suspect]
     Active Substance: BUPIVACAINE
     Dosage: 19.370 ?G, \DAY
     Route: 037
     Dates: start: 20150810
  13. COMPOUNDED BACLOFEN [Suspect]
     Active Substance: BACLOFEN
     Dosage: 161.42 ?G, \DAY
     Route: 037
     Dates: start: 20150810

REACTIONS (9)
  - Vomiting [Unknown]
  - Nausea [Unknown]
  - Confusional state [Unknown]
  - Implant site pain [Recovered/Resolved]
  - Body temperature fluctuation [Unknown]
  - Agitation [Unknown]
  - Off label use [Unknown]
  - Intestinal obstruction [Unknown]
  - Drug withdrawal syndrome [Unknown]

NARRATIVE: CASE EVENT DATE: 20151008
